FAERS Safety Report 8964057 (Version 2)
Quarter: 2014Q1

REPORT INFORMATION
  Report Type: Spontaneous
  Country: US (occurrence: US)
  Receive Date: 20121214
  Receipt Date: 20140129
  Transmission Date: 20141002
  Serious: Yes (Hospitalization, Other)
  Sender: FDA-Public Use
  Company Number: US-BAYER-2012-130311

PATIENT
  Age: 18 Year
  Sex: Female

DRUGS (7)
  1. YAZ [Suspect]
     Dosage: UNK
  2. YASMIN [Suspect]
     Dosage: UNK
  3. AMPHETAMINE SALTS [Concomitant]
     Dosage: 15 MG, UNK
  4. CEFDINIR [Concomitant]
     Dosage: 300 MG, UNK
  5. NAPROXEN [Concomitant]
     Dosage: 500 MG, UNK
  6. HYDROCODONE W/APAP [Concomitant]
     Dosage: 5/500 MG
  7. CYCLOBENZAPRINE [Concomitant]
     Dosage: 10 MG, UNK

REACTIONS (4)
  - Cholelithiasis [None]
  - Cholecystectomy [None]
  - Injury [None]
  - Pain [None]
